FAERS Safety Report 11356428 (Version 2)
Quarter: 2015Q3

REPORT INFORMATION
  Report Type: Spontaneous
  Country: US (occurrence: US)
  Receive Date: 20150807
  Receipt Date: 20150813
  Transmission Date: 20151125
  Serious: No
  Sender: FDA-Public Use
  Company Number: ALCN2015US004825

PATIENT

DRUGS (1)
  1. OFLOXACIN. [Suspect]
     Active Substance: OFLOXACIN
     Indication: PREOPERATIVE CARE
     Dosage: UNK
     Route: 047
     Dates: start: 201502

REACTIONS (2)
  - Drug dispensing error [Unknown]
  - Incorrect route of drug administration [Unknown]
